FAERS Safety Report 5262327-3 (Version None)
Quarter: 2007Q1

REPORT INFORMATION
  Report Type: 
  Country: None (occurrence: None)
  Receive Date: 20070308
  Receipt Date: 20070308
  Transmission Date: 20070707
  Serious: Yes (Hospitalization)
  Sender: FDA-Public Use
  Company Number: None

PATIENT
  Sex: Female
  Weight: 47.1741 kg

DRUGS (6)
  1. THALIDOMIDE [Suspect]
     Indication: SALIVARY GLAND CANCER
     Dosage: 100 MG QD PO
     Route: 048
     Dates: start: 20070117, end: 20070215
  2. TEMODAR [Suspect]
     Indication: SALIVARY GLAND CANCER
     Dosage: 100 MG QD PO
     Route: 048
     Dates: start: 20070117, end: 20070215
  3. XELODA [Suspect]
     Indication: SALIVARY GLAND CANCER
     Dosage: 2000 MG QD PO
     Route: 048
     Dates: start: 20070117, end: 20070215
  4. SYNTHROID [Concomitant]
  5. LOTREL [Concomitant]
  6. ZOFRAN [Concomitant]

REACTIONS (4)
  - ASTHENIA [None]
  - DEHYDRATION [None]
  - DIZZINESS [None]
  - MALNUTRITION [None]
